FAERS Safety Report 7879662-2 (Version None)
Quarter: 2011Q4

REPORT INFORMATION
  Report Type: 
  Country: None (occurrence: None)
  Receive Date: 20111101
  Receipt Date: 20110929
  Transmission Date: 20120403
  Serious: Yes (Hospitalization)
  Sender: FDA-Public Use
  Company Number: JP-GLAXOSMITHKLINE-B0752741A

PATIENT
  Age: 78 Year
  Sex: Female

DRUGS (6)
  1. LANSOPRAZOLE [Concomitant]
     Dosage: 15MG PER DAY
     Route: 048
  2. ARICEPT [Concomitant]
     Dosage: 10MG PER DAY
     Route: 048
  3. SEROQUEL [Concomitant]
     Dosage: 100MG PER DAY
     Route: 048
  4. GASMOTIN [Concomitant]
     Dosage: 20MG PER DAY
     Route: 048
  5. VALTREX [Suspect]
     Indication: HERPES ZOSTER
     Dosage: 3000MG PER DAY
     Route: 048
     Dates: start: 20110924, end: 20110927
  6. MAGMITT [Concomitant]
     Dosage: 500MG PER DAY
     Route: 048

REACTIONS (2)
  - ALTERED STATE OF CONSCIOUSNESS [None]
  - RENAL FAILURE [None]
